FAERS Safety Report 5636934-X (Version None)
Quarter: 2008Q1

REPORT INFORMATION
  Report Type: 
  Country: None (occurrence: None)
  Receive Date: 20080220
  Receipt Date: 20080220
  Transmission Date: 20080703
  Serious: Yes (Other)
  Sender: FDA-Public Use
  Company Number: None

PATIENT
  Age: 60 Year
  Sex: Male
  Weight: 101.6057 kg

DRUGS (1)
  1. DESMOPRESSIN ACETATE [Suspect]
     Indication: HYPOPITUITARISM
     Dosage: 2-3 TIMES A DAY PRESCRIBED DAILY NASAL
     Route: 045
     Dates: start: 20080115, end: 20080218

REACTIONS (4)
  - BLOOD ELECTROLYTES ABNORMAL [None]
  - DRUG INEFFECTIVE [None]
  - INCORRECT DOSE ADMINISTERED [None]
  - PHARMACEUTICAL PRODUCT COMPLAINT [None]
